FAERS Safety Report 6318129-X (Version None)
Quarter: 2009Q3

REPORT INFORMATION
  Report Type: 
  Country: None (occurrence: None)
  Receive Date: 20090821
  Receipt Date: 20090811
  Transmission Date: 20100115
  Serious: Yes (Hospitalization)
  Sender: FDA-Public Use
  Company Number: A0413968A

PATIENT
  Age: 57 Year
  Sex: Male

DRUGS (7)
  1. AVANDIA [Suspect]
     Dosage: 4MG PER DAY
     Route: 048
     Dates: start: 20001113, end: 20010101
  2. DIOVAN [Concomitant]
     Dates: end: 20010301
  3. HYDROCHLOROTHIAZIDE [Concomitant]
     Dates: start: 20001113
  4. VIAGRA [Concomitant]
     Dates: start: 20010101
  5. RAMIPRIL [Concomitant]
     Dates: start: 20010301
  6. MICRO-K [Concomitant]
  7. SOTALOL HYDROCHLORIDE [Concomitant]

REACTIONS (3)
  - CARDIAC FAILURE CONGESTIVE [None]
  - CORONARY ARTERY DISEASE [None]
  - MYOCARDIAL INFARCTION [None]
